FAERS Safety Report 7005222 (Version 4)
Quarter: 2013Q1

REPORT INFORMATION
  Report Type: Report from Study
  Country: DE (occurrence: DE)
  Receive Date: 20090528
  Receipt Date: 20130307
  Transmission Date: 20140127
  Serious: Yes (Hospitalization)
  Sender: FDA-Public Use
  Company Number: DE-AMGEN-UK347654

PATIENT
  Sex: Male
  Weight: 67 kg

DRUGS (3)
  1. CINACALCET HCL [Suspect]
     Indication: HYPERPARATHYROIDISM SECONDARY
     Dosage: 30 MG, UNK
     Route: 048
     Dates: start: 20081203, end: 20090120
  2. BELOC [Concomitant]
     Dosage: UNK UNK, UNK
     Route: 048
  3. DELIX [Concomitant]
     Dosage: UNK UNK, UNK
     Route: 065

REACTIONS (2)
  - Abdominal pain [Recovered/Resolved]
  - Nausea [Recovered/Resolved]
